FAERS Safety Report 19490915 (Version 1)
Quarter: 2021Q3

REPORT INFORMATION
  Report Type: Spontaneous
  Country: US (occurrence: US)
  Receive Date: 20210705
  Receipt Date: 20210705
  Transmission Date: 20211014
  Serious: No
  Sender: FDA-Public Use
  Company Number: US-SA-2021SA215986

PATIENT
  Age: 63 Year
  Sex: Female

DRUGS (2)
  1. AVONEX [Concomitant]
     Active Substance: INTERFERON BETA-1A
  2. AUBAGIO [Suspect]
     Active Substance: TERIFLUNOMIDE
     Indication: MULTIPLE SCLEROSIS
     Dosage: 14 MG, QD
     Route: 048
     Dates: start: 202105

REACTIONS (5)
  - Hepatic enzyme increased [Unknown]
  - Diarrhoea [Unknown]
  - Urinary tract infection [Unknown]
  - Alopecia [Unknown]
  - Asthenia [Unknown]

NARRATIVE: CASE EVENT DATE: 2021
